FAERS Safety Report 9998248 (Version 2)
Quarter: 2014Q1

REPORT INFORMATION
  Report Type: Report from Study
  Country: BE (occurrence: BE)
  Receive Date: 20140311
  Receipt Date: 20140328
  Transmission Date: 20141002
  Serious: Yes (Death, Hospitalization)
  Sender: FDA-Public Use
  Company Number: BE-AMGEN-BELCT2014016327

PATIENT
  Age: 70 Year
  Sex: Male
  Weight: 46 kg

DRUGS (4)
  1. ETANERCEPT [Suspect]
     Indication: RHEUMATOID ARTHRITIS
     Dosage: 25 MG, 2X/WEEK
     Route: 058
     Dates: start: 20030626
  2. ETANERCEPT [Suspect]
     Dosage: 25 MG, QWK
     Route: 058
     Dates: start: 20030720, end: 20040109
  3. LEDERTREXATE                       /00113801/ [Concomitant]
     Dosage: UNK
     Route: 065
     Dates: start: 2000, end: 200109
  4. MEDROL                             /00049601/ [Concomitant]
     Dosage: UNK
     Route: 048
     Dates: start: 1995, end: 200401

REACTIONS (4)
  - Respiratory distress [Fatal]
  - Pulmonary fibrosis [Fatal]
  - Lung disorder [Fatal]
  - Cytomegalovirus infection [Fatal]
